FAERS Safety Report 5721857-8 (Version None)
Quarter: 2008Q2

REPORT INFORMATION
  Report Type: 
  Country: None (occurrence: None)
  Receive Date: 20080429
  Receipt Date: 20080425
  Transmission Date: 20081010
  Serious: Yes (Other)
  Sender: FDA-Public Use
  Company Number: ES-WYE-G01463908

PATIENT
  Age: 70 Year
  Sex: Male

DRUGS (2)
  1. TYGACIL [Suspect]
     Dosage: UNKNOWN
  2. HEPARIN [Concomitant]
     Dosage: UNKNOWN

REACTIONS (2)
  - CHOLESTASIS [None]
  - THROMBOCYTOPENIA [None]
